FAERS Safety Report 9799602 (Version 1)
Quarter: 2014Q1

REPORT INFORMATION
  Report Type: Spontaneous
  Country: US (occurrence: US)
  Receive Date: 20140106
  Receipt Date: 20140106
  Transmission Date: 20141002
  Serious: No
  Sender: FDA-Public Use
  Company Number: US-GILEAD-2010-0031451

PATIENT
  Age: 56 Year
  Sex: Female
  Weight: 109.77 kg

DRUGS (18)
  1. LETAIRIS [Suspect]
     Indication: PULMONARY ARTERIAL HYPERTENSION
     Dates: start: 20100606
  2. REMODULIN [Concomitant]
  3. COREG CR [Concomitant]
  4. LASIX [Concomitant]
  5. COUMADIN [Concomitant]
  6. ASA [Concomitant]
  7. TRILIPIX [Concomitant]
  8. JANUVIA [Concomitant]
  9. LANTUS [Concomitant]
  10. NOVOLOG [Concomitant]
  11. BENICAR [Concomitant]
  12. ACTOS [Concomitant]
  13. PEPCID [Concomitant]
  14. LYRICA [Concomitant]
  15. CYMBALTA [Concomitant]
  16. XANAX [Concomitant]
  17. NEXIUM [Concomitant]
  18. VITAMIN D [Concomitant]

REACTIONS (1)
  - Headache [Not Recovered/Not Resolved]
